FAERS Safety Report 7721410-0 (Version None)
Quarter: 2011Q3

REPORT INFORMATION
  Report Type: 
  Country: None (occurrence: None)
  Receive Date: 20110831
  Receipt Date: 20110823
  Transmission Date: 20111222
  Serious: Yes (Hospitalization)
  Sender: FDA-Public Use
  Company Number: US-ROCHE-798710

PATIENT
  Sex: Male

DRUGS (8)
  1. FOLIC ACID [Concomitant]
  2. CIPROFLOXACIN [Concomitant]
  3. AVASTIN [Suspect]
     Indication: HEAD AND NECK CANCER
     Route: 065
     Dates: start: 20110607
  4. DECADRON [Concomitant]
  5. CETUXIMAB [Suspect]
     Indication: HEAD AND NECK CANCER
     Route: 065
     Dates: start: 20110529
  6. PEMETREXED [Suspect]
     Indication: HEAD AND NECK CANCER
     Route: 065
     Dates: start: 20110607
  7. DOXYCLINE [Concomitant]
  8. CETUXIMAB [Suspect]
     Route: 065
     Dates: start: 20110607

REACTIONS (4)
  - INFECTION [None]
  - FEEDING TUBE COMPLICATION [None]
  - WEIGHT DECREASED [None]
  - FATIGUE [None]
